FAERS Safety Report 4946916-9 (Version None)
Quarter: 2006Q1

REPORT INFORMATION
  Report Type: 
  Country: None (occurrence: None)
  Receive Date: 20060317
  Receipt Date: 20060308
  Transmission Date: 20060701
  Serious: Yes (Other)
  Sender: FDA-Public Use
  Company Number: US-JNJFOC-20060302150

PATIENT
  Age: 19 Year
  Sex: Female

DRUGS (2)
  1. NORGESTIMATE AND ETHINYL ESTRADIOL [Suspect]
     Indication: CONTRACEPTION
     Dates: start: 20050701
  2. IBUPROFEN [Concomitant]
     Indication: HEADACHE

REACTIONS (4)
  - HYPOAESTHESIA [None]
  - HYPOXIA [None]
  - LOSS OF CONSCIOUSNESS [None]
  - VOMITING [None]
